FAERS Safety Report 4614091-6 (Version None)
Quarter: 2005Q1

REPORT INFORMATION
  Report Type: 
  Country: None (occurrence: None)
  Receive Date: 20050316
  Receipt Date: 20050302
  Transmission Date: 20050727
  Serious: Yes (Other)
  Sender: FDA-Public Use
  Company Number: 2005EU000390

PATIENT
  Age: 25 Year
  Sex: Female
  Weight: 65 kg

DRUGS (1)
  1. PROTOPIC [Suspect]
     Dosage: D, TOPICAL
     Route: 061

REACTIONS (7)
  - ALCOHOL INTERACTION [None]
  - ALCOHOL INTOLERANCE [None]
  - FACIAL PAIN [None]
  - FATIGUE [None]
  - FLUSHING [None]
  - PAIN OF SKIN [None]
  - SOMNOLENCE [None]
